FAERS Safety Report 15090504 (Version 2)
Quarter: 2018Q3

REPORT INFORMATION
  Report Type: Spontaneous
  Country: US (occurrence: US)
  Receive Date: 20180629
  Receipt Date: 20180802
  Transmission Date: 20181010
  Serious: Yes (Other)
  Sender: FDA-Public Use
  Company Number: US-ALLERGAN-1832264US

PATIENT
  Age: 72 Year
  Sex: Male

DRUGS (1)
  1. ARMOUR THYROID [Suspect]
     Active Substance: THYROID, PORCINE
     Indication: HYPOTHYROIDISM
     Dosage: 75 MG, QD
     Route: 048
     Dates: start: 2003, end: 201806

REACTIONS (7)
  - Lung neoplasm malignant [Recovered/Resolved]
  - Bladder cancer [Recovered/Resolved]
  - Tumour invasion [Recovered/Resolved]
  - Fatigue [Unknown]
  - Prostate cancer [Recovered/Resolved]
  - Pruritus [Unknown]
  - Alopecia [Unknown]

NARRATIVE: CASE EVENT DATE: 2011
